FAERS Safety Report 12529325 (Version 1)
Quarter: 2016Q3

REPORT INFORMATION
  Report Type: Spontaneous
  Country: US (occurrence: US)
  Receive Date: 20160705
  Receipt Date: 20160705
  Transmission Date: 20161109
  Serious: Yes (Life-Threatening, Hospitalization, Other)
  Sender: FDA-Public Use
  Company Number: US-APOTEX-2016AP009403

PATIENT
  Age: 60 Year
  Sex: Female

DRUGS (1)
  1. ALLOPURINOL TABLETS USP [Suspect]
     Active Substance: ALLOPURINOL
     Indication: GOUT
     Dosage: UNK
     Route: 065

REACTIONS (5)
  - Acute kidney injury [Recovering/Resolving]
  - Acute respiratory failure [Recovering/Resolving]
  - Toxic epidermal necrolysis [Recovering/Resolving]
  - Rhabdomyolysis [Recovering/Resolving]
  - Hypovolaemia [Recovering/Resolving]
